FAERS Safety Report 15624198 (Version 10)
Quarter: 2019Q4

REPORT INFORMATION
  Report Type: Spontaneous
  Country: TW (occurrence: TW)
  Receive Date: 20181116
  Receipt Date: 20191016
  Transmission Date: 20200122
  Serious: Yes (Other)
  Sender: FDA-Public Use
  Company Number: TW-AMGEN-TWNSP2018145836

PATIENT
  Age: 60 Year
  Sex: Male

DRUGS (5)
  1. GENIQUIN [Concomitant]
     Dosage: 200 MILLIGRAM, QD
  2. GENIQUIN [Concomitant]
     Dosage: 200 MG, DAILY
  3. ENBREL [Suspect]
     Active Substance: ETANERCEPT
     Indication: RHEUMATOID ARTHRITIS
     Dosage: 25 MILLIGRAM, 2 TIMES/WK
     Route: 058
     Dates: start: 20171011
  4. SALAZINE [Concomitant]
     Active Substance: SULFASALAZINE
     Dosage: 1 GRAM, QD
  5. SALAZINE [Concomitant]
     Active Substance: SULFASALAZINE
     Dosage: 1 G, DAILY

REACTIONS (4)
  - Hepatitis B DNA increased [Unknown]
  - Mycobacterium avium complex infection [Not Recovered/Not Resolved]
  - Alanine aminotransferase increased [Recovered/Resolved]
  - Aspartate aminotransferase increased [Recovered/Resolved]

NARRATIVE: CASE EVENT DATE: 20180929
